FAERS Safety Report 21689721 (Version 1)
Quarter: 2022Q4

REPORT INFORMATION
  Report Type: Report from Study
  Country: US (occurrence: US)
  Receive Date: 20221206
  Receipt Date: 20221206
  Transmission Date: 20230112
  Serious: No
  Sender: FDA-Public Use
  Company Number: US-ABBVIE-4222750

PATIENT
  Sex: Female

DRUGS (1)
  1. HUMIRA [Suspect]
     Active Substance: ADALIMUMAB
     Indication: Systemic lupus erythematosus
     Route: 058

REACTIONS (4)
  - Off label use [Unknown]
  - Device issue [Not Recovered/Not Resolved]
  - Injection site bruising [Unknown]
  - Drug delivery system issue [Not Recovered/Not Resolved]
